FAERS Safety Report 11771881 (Version 1)
Quarter: 2015Q4

REPORT INFORMATION
  Report Type: Spontaneous
  Country: US (occurrence: None)
  Receive Date: 20151123
  Receipt Date: 20151123
  Transmission Date: 20160304
  Serious: No
  Sender: FDA-Public Use
  Company Number: None

PATIENT
  Age: 77 Year
  Sex: Female
  Weight: 113.4 kg

DRUGS (1)
  1. ALENDRONATE SODIUM 70MG [Suspect]
     Active Substance: ALENDRONATE SODIUM
     Indication: BONE LOSS
     Dosage: 1 TABLET A WEEK SUNDAY MORNING AT 8:00
     Dates: start: 20150906, end: 20151018

REACTIONS (4)
  - Gait disturbance [None]
  - Arthralgia [None]
  - Myalgia [None]
  - Bone pain [None]
